FAERS Safety Report 12926776 (Version 3)
Quarter: 2017Q2

REPORT INFORMATION
  Report Type: Spontaneous
  Country: JP (occurrence: JP)
  Receive Date: 20161109
  Receipt Date: 20170420
  Transmission Date: 20170830
  Serious: Yes (Death)
  Sender: FDA-Public Use
  Company Number: JP-B.I. PHARMACEUTICALS,INC./RIDGEFIELD-2016-BI-075756

PATIENT
  Age: 63 Year
  Sex: Female

DRUGS (3)
  1. GILOTRIF [Suspect]
     Active Substance: AFATINIB
     Indication: LUNG ADENOCARCINOMA STAGE IV
     Route: 065
  2. GILOTRIF [Suspect]
     Active Substance: AFATINIB
     Route: 065
  3. GILOTRIF [Suspect]
     Active Substance: AFATINIB
     Route: 065

REACTIONS (6)
  - Alopecia [Unknown]
  - Respiratory failure [Fatal]
  - Obliterative bronchiolitis [Fatal]
  - Rash [Unknown]
  - Stomatitis [Unknown]
  - Paronychia [Unknown]
